FAERS Safety Report 20646101 (Version 1)
Quarter: 2022Q1

REPORT INFORMATION
  Report Type: Spontaneous
  Country: US (occurrence: US)
  Receive Date: 20220329
  Receipt Date: 20220329
  Transmission Date: 20220424
  Serious: No
  Sender: FDA-Public Use
  Company Number: US-SANOFI-01029198

PATIENT
  Age: 91 Year
  Sex: Female

DRUGS (6)
  1. KEVZARA [Suspect]
     Active Substance: SARILUMAB
     Indication: Rheumatoid arthritis
     Dosage: DRUG STRUCTURE DOSAGE : 200 MG DRUG INTERVAL DOSAGE : EVERY 2 WEEKS DRUG TREATMENT DURATION:
  2. METHOTREXATE [Concomitant]
     Active Substance: METHOTREXATE
  3. REMICADE [Concomitant]
     Active Substance: INFLIXIMAB
  4. ENBREL [Concomitant]
     Active Substance: ETANERCEPT
  5. HUMIRA [Concomitant]
     Active Substance: ADALIMUMAB
  6. ACTEMRA [Concomitant]
     Active Substance: TOCILIZUMAB

REACTIONS (1)
  - Anxiety [Not Recovered/Not Resolved]
